FAERS Safety Report 12494055 (Version 2)
Quarter: 2016Q3

REPORT INFORMATION
  Report Type: Report from Study
  Country: CA (occurrence: CA)
  Receive Date: 20160623
  Receipt Date: 20160727
  Transmission Date: 20161109
  Serious: Yes (Life-Threatening, Hospitalization, Other)
  Sender: FDA-Public Use
  Company Number: CA-ABBVIE-16P-028-1658562-00

PATIENT
  Age: 37 Year
  Sex: Female
  Weight: 83.08 kg

DRUGS (18)
  1. INDOMETHACIN. [Concomitant]
     Active Substance: INDOMETHACIN
     Indication: PROPHYLAXIS
  2. STATEX [Concomitant]
     Active Substance: MORPHINE SULFATE
     Indication: ANALGESIC THERAPY
     Dosage: 1 TO 2 TABLETS/AS REQUIRED
     Dates: start: 20160609
  3. LUPRON DEPOT [Suspect]
     Active Substance: LEUPROLIDE ACETATE
     Indication: ENDOMETRIOSIS
     Route: 030
     Dates: start: 20150408, end: 20160505
  4. APO-NAPROXEN [Concomitant]
     Active Substance: NAPROXEN
     Indication: PROPHYLAXIS
  5. APIXABAN [Concomitant]
     Active Substance: APIXABAN
     Indication: EMBOLISM
     Route: 065
  6. GABAPENTIN. [Concomitant]
     Active Substance: GABAPENTIN
     Indication: PRODUCT USED FOR UNKNOWN INDICATION
     Route: 065
  7. ESTRADIOL. [Concomitant]
     Active Substance: ESTRADIOL
     Indication: PRODUCT USED FOR UNKNOWN INDICATION
     Route: 065
  8. CLINDAMYCIN [Concomitant]
     Active Substance: CLINDAMYCIN\CLINDAMYCIN PHOSPHATE
     Indication: ANTIBIOTIC THERAPY
     Dates: start: 20160604
  9. NYSTATIN. [Concomitant]
     Active Substance: NYSTATIN
     Indication: ANTIFUNGAL TREATMENT
     Dosage: 4 TO 6 ML
     Route: 048
     Dates: start: 20160615
  10. CIPRALEX [Concomitant]
     Active Substance: ESCITALOPRAM OXALATE
     Indication: PRODUCT USED FOR UNKNOWN INDICATION
     Route: 065
  11. APO-GABAPENTIN [Concomitant]
     Active Substance: GABAPENTIN
     Indication: CONVULSION PROPHYLAXIS
     Dates: start: 20160615
  12. APO ACETAMINOPHEN [Concomitant]
     Indication: ANALGESIC THERAPY
     Dosage: 2 TABLETS EVERY 6 HOURS
     Dates: start: 20160609
  13. APO-NAPROXEN [Concomitant]
     Active Substance: NAPROXEN
     Indication: ARTHRITIS
     Dates: start: 20160609
  14. ESTRADOT [Concomitant]
     Active Substance: ESTRADIOL
     Indication: PRODUCT USED FOR UNKNOWN INDICATION
     Dosage: 0.25 MG/24H/APPLY 1 PATCH TWICE WEEKLY
     Dates: start: 20160420
  15. CEFUROXIME. [Concomitant]
     Active Substance: CEFUROXIME
     Indication: PRODUCT USED FOR UNKNOWN INDICATION
     Dates: start: 20160715
  16. INDOMETHACIN. [Concomitant]
     Active Substance: INDOMETHACIN
     Indication: ARTHRITIS
     Dosage: EVERY 8 TO 12 HOURS WHEN REQUIRRED
     Route: 054
     Dates: start: 20160602
  17. APO-ESCITALOPRAM [Concomitant]
     Active Substance: ESCITALOPRAM OXALATE
     Indication: MENTAL DISORDER
     Dates: start: 20160715
  18. APO-ESCITALOPRAM [Concomitant]
     Active Substance: ESCITALOPRAM OXALATE
     Indication: ANTIDEPRESSANT THERAPY

REACTIONS (7)
  - Mobility decreased [Unknown]
  - Endometriosis [Recovering/Resolving]
  - Haemoptysis [Recovered/Resolved]
  - Adenomyosis [Recovering/Resolving]
  - Pulmonary embolism [Recovering/Resolving]
  - Pain [Recovered/Resolved]
  - Dyspnoea [Recovered/Resolved]

NARRATIVE: CASE EVENT DATE: 20160531
